FAERS Safety Report 25667484 (Version 3)
Quarter: 2025Q3

REPORT INFORMATION
  Report Type: Report from Study
  Country: JP (occurrence: JP)
  Receive Date: 20250811
  Receipt Date: 20250917
  Transmission Date: 20251021
  Serious: Yes (Death, Other)
  Sender: TAKEDA
  Company Number: JP-TAKEDA-2025TJP008110

PATIENT
  Age: 53 Year
  Sex: Male
  Weight: 53.5 kg

DRUGS (64)
  1. MARIBAVIR [Suspect]
     Active Substance: MARIBAVIR
     Indication: Cytomegalovirus infection
     Dates: start: 20241128, end: 20241219
  2. MARIBAVIR [Suspect]
     Active Substance: MARIBAVIR
     Dates: start: 20250125, end: 20250205
  3. TACROLIMUS [Concomitant]
     Active Substance: TACROLIMUS
  4. MYCOPHENOLATE MOFETIL [Concomitant]
     Active Substance: MYCOPHENOLATE MOFETIL
     Dates: start: 20250118, end: 20250225
  5. AMLODIPINE [Concomitant]
     Active Substance: AMLODIPINE BESYLATE
  6. POTASSIUM CHLORIDE [Concomitant]
     Active Substance: POTASSIUM CHLORIDE
  7. FLUCONAZOLE [Concomitant]
     Active Substance: FLUCONAZOLE
  8. ZOVIRAX [Concomitant]
     Active Substance: ACYCLOVIR
  9. BISOPROLOL FUMARATE [Concomitant]
     Active Substance: BISOPROLOL FUMARATE
  10. VONOPRAZAN FUMARATE [Concomitant]
     Active Substance: VONOPRAZAN FUMARATE
  11. PARAFFIN [Concomitant]
     Active Substance: PARAFFIN
  12. XYLOCAINE [Concomitant]
     Active Substance: LIDOCAINE HYDROCHLORIDE
  13. LOCOID [Concomitant]
     Active Substance: HYDROCORTISONE BUTYRATE
  14. HEPARINOID [Concomitant]
  15. BETAMETHASONE DIPROPIONATE [Concomitant]
     Active Substance: BETAMETHASONE DIPROPIONATE
  16. SILVER SULFADIAZINE [Concomitant]
     Active Substance: SILVER SULFADIAZINE
  17. GLYCERIN [Concomitant]
     Active Substance: GLYCERIN
  18. HACHIAZULE [Concomitant]
  19. APREPITANT [Concomitant]
     Active Substance: APREPITANT
  20. CELECOXIB [Concomitant]
     Active Substance: CELECOXIB
  21. ALLOID G [Concomitant]
     Active Substance: SODIUM ALGINATE
  22. HEPARINOID [Concomitant]
  23. MEROPENEM [Concomitant]
     Active Substance: MEROPENEM
  24. HEPARIN SODIUM [Concomitant]
     Active Substance: HEPARIN SODIUM
  25. SODIUM CHLORIDE [Concomitant]
     Active Substance: SODIUM CHLORIDE
  26. PALONOSETRON [Concomitant]
     Active Substance: PALONOSETRON
  27. CYCLOPHOSPHAMIDE [Concomitant]
     Active Substance: CYCLOPHOSPHAMIDE
     Dates: start: 20241201, end: 20241201
  28. MESNA [Concomitant]
     Active Substance: MESNA
  29. THYMOGLOBULINE [Concomitant]
     Active Substance: LAPINE T-LYMPHOCYTE IMMUNE GLOBULIN
  30. DEXTROSE\SODIUM CHLORIDE\SODIUM LACTATE [Concomitant]
     Active Substance: DEXTROSE\SODIUM CHLORIDE\SODIUM LACTATE
  31. Soldem 3 [Concomitant]
  32. METHOTREXATE [Concomitant]
     Active Substance: METHOTREXATE
     Dates: start: 20241204, end: 20241204
  33. METHOTREXATE [Concomitant]
     Active Substance: METHOTREXATE
     Dates: start: 20241206, end: 20241206
  34. METHOTREXATE [Concomitant]
     Active Substance: METHOTREXATE
     Dates: start: 20241209, end: 20241209
  35. ACETAMINOPHEN [Concomitant]
     Active Substance: ACETAMINOPHEN
  36. FUROSEMIDE [Concomitant]
     Active Substance: FUROSEMIDE
  37. MAGNESIUM SULFATE [Concomitant]
     Active Substance: MAGNESIUM SULFATE
  38. POLARAMINE [Concomitant]
     Active Substance: DEXCHLORPHENIRAMINE MALEATE
  39. SOLU-MEDROL [Concomitant]
     Active Substance: METHYLPREDNISOLONE SODIUM SUCCINATE
  40. FLUDARA [Concomitant]
     Active Substance: FLUDARABINE PHOSPHATE
     Dates: start: 20241128, end: 20241201
  41. FLUDARA [Concomitant]
     Active Substance: FLUDARABINE PHOSPHATE
     Dates: start: 20250120, end: 20250124
  42. SOLU-CORTEF [Concomitant]
     Active Substance: HYDROCORTISONE SODIUM SUCCINATE
  43. METOCLOPRAMIDE [Concomitant]
     Active Substance: METOCLOPRAMIDE
  44. KCL [Concomitant]
     Active Substance: POTASSIUM CHLORIDE
  45. DORIPENEM MONOHYDRATE [Concomitant]
     Active Substance: DORIPENEM MONOHYDRATE
  46. TEICOPLANIN [Concomitant]
     Active Substance: TEICOPLANIN
  47. GLYCYRRHIZIN [Concomitant]
     Active Substance: GLYCYRRHIZIN
  48. LENOGRASTIM [Concomitant]
     Active Substance: LENOGRASTIM
  49. AMINO ACIDS\DEXTROSE\ELECTROLYTES NOS\VITAMINS [Concomitant]
     Active Substance: AMINO ACIDS\DEXTROSE\ELECTROLYTES NOS\VITAMINS
  50. PENTAMIDINE [Concomitant]
     Active Substance: PENTAMIDINE
  51. NOVOLIN R [Concomitant]
     Active Substance: INSULIN HUMAN
  52. VANCOMYCIN [Concomitant]
     Active Substance: VANCOMYCIN
  53. LEVOFLOXACIN HEMIHYDRATE [Concomitant]
     Active Substance: LEVOFLOXACIN
  54. DEXTROSE [Concomitant]
     Active Substance: DEXTROSE MONOHYDRATE
  55. AMINO ACIDS\DEXTROSE\ELECTROLYTES NOS\MINERALS\VITAMINS [Concomitant]
     Active Substance: AMINO ACIDS\DEXTROSE\ELECTROLYTES NOS\MINERALS\VITAMINS
  56. CALCIUM CHLORIDE ANHYDROUS\POTASSIUM CHLORIDE\SODIUM CHLORIDE\SODIUM L [Concomitant]
     Active Substance: CALCIUM CHLORIDE ANHYDROUS\POTASSIUM CHLORIDE\SODIUM CHLORIDE\SODIUM LACTATE
  57. VFEND [Concomitant]
     Active Substance: VORICONAZOLE
  58. PENTAZOCINE [Concomitant]
     Active Substance: PENTAZOCINE
  59. PITRESSIN [Concomitant]
     Active Substance: VASOPRESSIN
  60. Sublood bsg [Concomitant]
  61. NAFAMOSTAT [Concomitant]
     Active Substance: NAFAMOSTAT
  62. DOBUTAMINE [Concomitant]
     Active Substance: DOBUTAMINE HYDROCHLORIDE
  63. CYCLOPHOSPHAMIDE [Concomitant]
     Active Substance: CYCLOPHOSPHAMIDE
     Dates: start: 20241201, end: 20241201
  64. ALKERAN [Concomitant]
     Active Substance: MELPHALAN
     Dates: start: 20250125, end: 20250125

REACTIONS (1)
  - Sepsis [Fatal]

NARRATIVE: CASE EVENT DATE: 20250218
